FAERS Safety Report 9690387 (Version 1)
Quarter: 2013Q4

REPORT INFORMATION
  Report Type: Spontaneous
  Country: GB (occurrence: None)
  Receive Date: 20131113
  Receipt Date: 20131113
  Transmission Date: 20140711
  Serious: Yes (Other)
  Sender: FDA-Public Use
  Company Number: AUR-APL-2013-09510

PATIENT
  Age: 20 Year
  Sex: Male

DRUGS (2)
  1. LEVETIRACETAM [Suspect]
     Indication: PRODUCT USED FOR UNKNOWN INDICATION
     Dosage: UNKNOWN
  2. CARBAMAZEPINE [Suspect]
     Dosage: ORAL
     Route: 048

REACTIONS (10)
  - Dysarthria [None]
  - Confusional state [None]
  - Agitation [None]
  - Intentional overdose [None]
  - Hypotension [None]
  - Bundle branch block right [None]
  - Grand mal convulsion [None]
  - Cardiac arrest [None]
  - Ventricular fibrillation [None]
  - Haemofiltration [None]
